FAERS Safety Report 4771905-7 (Version None)
Quarter: 2005Q3

REPORT INFORMATION
  Report Type: 
  Country: None (occurrence: None)
  Receive Date: 20050916
  Receipt Date: 20050614
  Transmission Date: 20060218
  Serious: Yes (Disabling)
  Sender: FDA-Public Use
  Company Number: US-GLAXOSMITHKLINE-A0563419A

PATIENT
  Age: 80 Year
  Sex: Female
  Weight: 56.8 kg

DRUGS (2)
  1. LAMICTAL [Suspect]
     Indication: BIPOLAR I DISORDER
     Route: 048
     Dates: start: 20040504, end: 20050614
  2. REMERON [Concomitant]
     Indication: BIPOLAR I DISORDER
     Dosage: 60MG PER DAY
     Route: 048
     Dates: start: 20031021

REACTIONS (2)
  - APHASIA [None]
  - DEMENTIA ALZHEIMER'S TYPE [None]
